FAERS Safety Report 9827994 (Version 1)
Quarter: 2014Q1

REPORT INFORMATION
  Report Type: Spontaneous
  Country: US (occurrence: None)
  Receive Date: 20140116
  Receipt Date: 20140116
  Transmission Date: 20141002
  Serious: Yes (Life-Threatening, Hospitalization, Other)
  Sender: FDA-Public Use
  Company Number: None

PATIENT
  Age: 64 Year
  Sex: Male
  Weight: 119.9 kg

DRUGS (1)
  1. HYDROXYCHLOROQUINE [Suspect]
     Indication: PAIN
     Route: 048
     Dates: start: 20130406, end: 20130418

REACTIONS (4)
  - Volvulus [None]
  - Anaphylactic reaction [None]
  - Respiratory depression [None]
  - Rash [None]
